FAERS Safety Report 9360050 (Version 1)
Quarter: 2013Q2

REPORT INFORMATION
  Report Type: Spontaneous
  Country: US (occurrence: None)
  Receive Date: 20130620
  Receipt Date: 20130620
  Transmission Date: 20140414
  Serious: Yes (Life-Threatening, Hospitalization)
  Sender: FDA-Public Use
  Company Number: None

PATIENT
  Age: 35 Year
  Sex: Female
  Weight: 86 kg

DRUGS (3)
  1. WARFARIN [Suspect]
     Indication: DEEP VEIN THROMBOSIS
     Dosage: 5MG ONCE DAILY PO?MINIMUM PAST 5 MONTHS
     Route: 048
  2. FLUCONAZOLE [Suspect]
     Dosage: 200MG ONCE DAILY PO?
     Route: 048
     Dates: start: 20130515, end: 20130530
  3. FLUCONAZOLE [Suspect]
     Dosage: 200MG ONCE DAILY PO?
     Route: 048
     Dates: start: 20130515, end: 20130530

REACTIONS (8)
  - Haematuria [None]
  - International normalised ratio increased [None]
  - Fatigue [None]
  - Dizziness [None]
  - Diarrhoea [None]
  - Hunger [None]
  - Urinary incontinence [None]
  - Drug interaction [None]
